FAERS Safety Report 20573334 (Version 1)
Quarter: 2022Q1

REPORT INFORMATION
  Report Type: Spontaneous
  Country: DE (occurrence: DE)
  Receive Date: 20220309
  Receipt Date: 20220309
  Transmission Date: 20220423
  Serious: Yes (Other)
  Sender: FDA-Public Use
  Company Number: DE-EMBRYOTOX-202109805

PATIENT
  Sex: Female
  Weight: 93 kg

DRUGS (8)
  1. CANDESARTAN [Suspect]
     Active Substance: CANDESARTAN
     Indication: Hypertension
     Dosage: 64 [MG/D ] 4 SEPARATED DOSES
     Route: 048
     Dates: start: 20210422, end: 20210630
  2. COMIRNATY [Concomitant]
     Active Substance: TOZINAMERAN
     Indication: COVID-19 immunisation
     Dosage: 22.4. - 22.4. GESTATIONAL WEEK
     Route: 030
     Dates: start: 20210512, end: 20210512
  3. COMIRNATY [Concomitant]
     Active Substance: TOZINAMERAN
     Dosage: 28.4. - 28.4. GESTATIONAL WEEK
     Route: 030
     Dates: start: 20210623, end: 20210623
  4. METHYLDOPA [Concomitant]
     Active Substance: METHYLDOPA
     Indication: Hypertension
     Dosage: 375 [MG/D (125-125-125) ] 3 SEPARATED DOSES
     Route: 048
  5. METOPROLOL [Concomitant]
     Active Substance: METOPROLOL
     Indication: Hypertension
     Dosage: UNK
     Route: 048
  6. METOPROLOL [Concomitant]
     Active Substance: METOPROLOL
     Dosage: UNK
     Route: 048
  7. FOLIC ACID [Concomitant]
     Active Substance: FOLIC ACID
     Indication: Prophylaxis of neural tube defect
     Dosage: UNK
     Route: 048
  8. FOLIC ACID [Concomitant]
     Active Substance: FOLIC ACID
     Dosage: UNK
     Route: 064

REACTIONS (3)
  - Oligohydramnios [Recovered/Resolved]
  - Polyhydramnios [Recovered/Resolved]
  - Exposure during pregnancy [Unknown]
